FAERS Safety Report 7942946-3 (Version None)
Quarter: 2011Q4

REPORT INFORMATION
  Report Type: 
  Country: None (occurrence: None)
  Receive Date: 20111128
  Receipt Date: 20111118
  Transmission Date: 20120403
  Serious: Yes (Other)
  Sender: FDA-Public Use
  Company Number: US-MERCK-1111USA02659

PATIENT
  Age: 61 Year
  Sex: Female

DRUGS (8)
  1. DECADRON [Suspect]
     Indication: NON-SMALL CELL LUNG CANCER
     Route: 065
     Dates: start: 20110301
  2. DECADRON [Suspect]
     Route: 065
     Dates: start: 20111001
  3. TAXOTERE [Concomitant]
     Indication: NON-SMALL CELL LUNG CANCER
     Route: 065
     Dates: start: 20110301, end: 20110301
  4. ZOMETA [Concomitant]
     Route: 065
     Dates: start: 20110101, end: 20110101
  5. TAXOTERE [Concomitant]
     Route: 065
     Dates: start: 20110701, end: 20110701
  6. DECADRON [Suspect]
     Route: 065
     Dates: start: 20110601
  7. TAXOTERE [Concomitant]
     Route: 065
     Dates: start: 20111006, end: 20111006
  8. WARFARIN [Concomitant]
     Indication: THROMBOSIS
     Route: 065

REACTIONS (9)
  - NON-SMALL CELL LUNG CANCER [None]
  - INSOMNIA [None]
  - DRUG EFFECT DECREASED [None]
  - RASH MACULAR [None]
  - SKIN DISORDER [None]
  - PLEURAL EFFUSION [None]
  - SWELLING [None]
  - ERYTHEMA [None]
  - HEPATIC LESION [None]
